FAERS Safety Report 6204363-6 (Version None)
Quarter: 2009Q2

REPORT INFORMATION
  Report Type: 
  Country: None (occurrence: None)
  Receive Date: 20090527
  Receipt Date: 20090514
  Transmission Date: 20091009
  Serious: Yes (Hospitalization)
  Sender: FDA-Public Use
  Company Number: ES-ELI_LILLY_AND_COMPANY-ES200905002806

PATIENT
  Age: 84 Year
  Sex: Female

DRUGS (5)
  1. FORTEO [Suspect]
     Indication: OSTEOPOROSIS
     Dosage: 20 UG, UNK
     Route: 058
     Dates: start: 20090201, end: 20090318
  2. SEGURIL [Concomitant]
  3. GELOCATIL [Concomitant]
  4. INSULIN [Concomitant]
     Indication: DIABETES MELLITUS
  5. ANTIHYPERTENSIVES [Concomitant]

REACTIONS (7)
  - CELLULITIS [None]
  - CONVULSION [None]
  - DERMATITIS [None]
  - HEPATIC ENCEPHALOPATHY [None]
  - INCOHERENT [None]
  - PAIN IN EXTREMITY [None]
  - PHLEBITIS [None]
